FAERS Safety Report 9849116 (Version 1)
Quarter: 2014Q1

REPORT INFORMATION
  Report Type: Spontaneous
  Country: CA (occurrence: None)
  Receive Date: 20140124
  Receipt Date: 20140124
  Transmission Date: 20141002
  Serious: Yes (Hospitalization)
  Sender: FDA-Public Use
  Company Number: 2014HINLIT0009

PATIENT
  Age: 60 Year
  Sex: Male
  Weight: 61.1 kg

DRUGS (15)
  1. NEVIRAPINE [Suspect]
     Indication: PRODUCT USED FOR UNKNOWN INDICATION
  2. RIVAROXABAN [Suspect]
     Indication: PRODUCT USED FOR UNKNOWN INDICATION
  3. LAMIVUDINE [Concomitant]
  4. ZIDOVUDINE [Concomitant]
  5. AMLODIPINE [Concomitant]
  6. METOPROLOL [Concomitant]
  7. LISINOPRIL [Concomitant]
  8. HYDROCHLOROTHIAZIDE [Concomitant]
  9. ATORVASTATIN [Concomitant]
  10. ACETYLSALICYLIC ACID [Concomitant]
  11. CELECOXIB [Concomitant]
  12. OMEPRAZOLE [Concomitant]
  13. GABAPENTIN [Concomitant]
  14. LAMOTRIGINE [Concomitant]
  15. DALTEPARIN [Concomitant]

REACTIONS (24)
  - Embolism venous [None]
  - Drug interaction [None]
  - Drug intolerance [None]
  - Knee arthroplasty [None]
  - Dyspnoea [None]
  - Chest pain [None]
  - Local swelling [None]
  - Cardiac murmur [None]
  - Venous pressure jugular increased [None]
  - Haemoglobin decreased [None]
  - Platelet count decreased [None]
  - Creatinine renal clearance decreased [None]
  - Alanine aminotransferase increased [None]
  - Fibrin D dimer increased [None]
  - Troponin T increased [None]
  - Deep vein thrombosis [None]
  - Sinus tachycardia [None]
  - Electrocardiogram ST-T change [None]
  - Oxygen saturation decreased [None]
  - Mitral valve incompetence [None]
  - Tricuspid valve incompetence [None]
  - Coagulopathy [None]
  - Pyrexia [None]
  - Drug clearance increased [None]
